FAERS Safety Report 8826656 (Version 2)
Quarter: 2012Q4

REPORT INFORMATION
  Report Type: Report from Study
  Country: JP (occurrence: JP)
  Receive Date: 20121005
  Receipt Date: 20121026
  Transmission Date: 20130627
  Serious: Yes (Hospitalization)
  Sender: FDA-Public Use
  Company Number: JP-SANOFI-AVENTIS-2012SA072524

PATIENT
  Age: 75 Year
  Sex: Male
  Weight: 67.4 kg

DRUGS (24)
  1. CLOPIDOGREL BISULFATE [Suspect]
     Indication: NON ST SEGMENT ELEVATION MYOCARDIAL INFARCTION
     Route: 065
     Dates: start: 20110319, end: 20110319
  2. CLOPIDOGREL BISULFATE [Suspect]
     Indication: NON ST SEGMENT ELEVATION MYOCARDIAL INFARCTION
     Route: 065
     Dates: start: 20110320, end: 20120301
  3. BAYASPIRIN [Concomitant]
     Dosage: Used before the day preceding study treatment
  4. SIGMART [Concomitant]
     Dosage: Used before the day preceding study treatment
  5. BLOPRESS [Concomitant]
     Dosage: Used before the day preceding study treatment
  6. ATORVASTATIN [Concomitant]
     Dosage: Used before the day preceding study treatment
  7. SENNOSIDE A [Concomitant]
     Dosage: Used before the day preceding study treatment
     Dates: end: 20110318
  8. AMARYL [Concomitant]
     Dosage: Used before the day preceding study treatment
  9. VOGLIBOSE [Concomitant]
     Dosage: Used before the day preceding study treatment
  10. LASIX [Concomitant]
     Dosage: Used before the day preceding study treatment
     Dates: end: 20110319
  11. TAKEPRON OD [Concomitant]
     Dosage: Used before the day preceding study treatment
  12. MEDET [Concomitant]
     Dosage: Used before the day preceding study treatment
     Dates: end: 20110623
  13. PURSENNID /SCH/ [Concomitant]
     Dates: start: 20110320
  14. ARTIST [Concomitant]
     Dates: start: 20110422
  15. METFORMIN HYDROCHLORIDE [Concomitant]
     Dates: start: 20110623
  16. ATROPINE [Concomitant]
     Dates: start: 20110319, end: 20110319
  17. NORADRENALINE [Concomitant]
     Dates: start: 20110319, end: 20110319
  18. SIGMART [Concomitant]
     Dates: start: 20110319, end: 20110319
  19. ATARAX-P [Concomitant]
     Dosage: parenteral solution
     Dates: start: 20110319, end: 20110319
  20. ALLELOCK [Concomitant]
     Dates: start: 20110927
  21. HIRUDOID [Concomitant]
     Dosage: Used before the day preceding study treatment
  22. EURAX A [Concomitant]
     Dates: start: 20110927
  23. DIPHENHYDRAMINE [Concomitant]
     Dates: start: 20110927
  24. NIFLAN [Concomitant]
     Dosage: ophthalmic solution
     Dates: start: 20110713, end: 20120119

REACTIONS (1)
  - Coronary artery restenosis [Recovered/Resolved]
